FAERS Safety Report 10190268 (Version 4)
Quarter: 2014Q3

REPORT INFORMATION
  Report Type: Report from Study
  Country: US (occurrence: US)
  Receive Date: 20140522
  Receipt Date: 20140805
  Transmission Date: 20150326
  Serious: Yes (Hospitalization, Other)
  Sender: FDA-Public Use
  Company Number: PHEH2014US010150

PATIENT
  Age: 7 Year
  Sex: Male
  Weight: 47.5 kg

DRUGS (4)
  1. REMICADE [Concomitant]
     Active Substance: INFLIXIMAB
     Dosage: UNK UKN, UNK
  2. METHOTREXATE [Concomitant]
     Active Substance: METHOTREXATE
     Indication: JUVENILE IDIOPATHIC ARTHRITIS
     Dosage: 19.5 MG, WEEKLY
     Route: 058
     Dates: start: 201211
  3. ILARIS [Suspect]
     Active Substance: CANAKINUMAB
     Indication: JUVENILE IDIOPATHIC ARTHRITIS
     Dosage: 85 MG, QMO (FIRST DOSE)
     Route: 058
     Dates: start: 20140309, end: 20140309
  4. PREDNISONE. [Concomitant]
     Active Substance: PREDNISONE
     Indication: JUVENILE IDIOPATHIC ARTHRITIS
     Dosage: UNK (TAPERS)
     Route: 048
     Dates: start: 201210

REACTIONS (13)
  - Pyrexia [Recovering/Resolving]
  - Diarrhoea [Recovering/Resolving]
  - Arthritis enteropathic [Unknown]
  - Platelet count increased [Unknown]
  - Abdominal pain [Recovering/Resolving]
  - Juvenile idiopathic arthritis [Recovering/Resolving]
  - Inflammation [Unknown]
  - Mucosal ulceration [Recovering/Resolving]
  - Crohn^s disease [Unknown]
  - White blood cell count increased [Unknown]
  - Rash generalised [Recovering/Resolving]
  - Pain [Recovering/Resolving]
  - Red blood cell sedimentation rate increased [Unknown]

NARRATIVE: CASE EVENT DATE: 20140310
